FAERS Safety Report 9485676 (Version 1)
Quarter: 2013Q3

REPORT INFORMATION
  Report Type: Spontaneous
  Country: CH (occurrence: CH)
  Receive Date: 20130829
  Receipt Date: 20130829
  Transmission Date: 20140515
  Serious: Yes (Other)
  Sender: FDA-Public Use
  Company Number: CH-ASTRAZENECA-2013SE64809

PATIENT
  Age: 49 Year
  Sex: Female
  Weight: 52 kg

DRUGS (3)
  1. SEROQUEL XR [Suspect]
     Route: 048
     Dates: start: 20130802
  2. SEROQUEL XR [Suspect]
     Route: 048
     Dates: start: 20130802
  3. VENLAFAXIN [Suspect]
     Route: 065
     Dates: start: 2010

REACTIONS (3)
  - Hypertension [Recovering/Resolving]
  - Hyperthermia [Recovering/Resolving]
  - Dizziness [Recovering/Resolving]
